FAERS Safety Report 24889424 (Version 1)
Quarter: 2025Q1

REPORT INFORMATION
  Report Type: Spontaneous
  Country: US (occurrence: None)
  Receive Date: 20250123
  Receipt Date: 20250123
  Transmission Date: 20250409
  Serious: Yes (unspecified)
  Sender: FDA-CTU
  Company Number: None

PATIENT
  Age: 84 Year
  Sex: Male
  Weight: 62 kg

DRUGS (2)
  1. IOHEXOL [Suspect]
     Active Substance: IOHEXOL
     Indication: Computerised tomogram abdomen
     Route: 042
     Dates: start: 20241118, end: 20241118
  2. IOHEXOL [Suspect]
     Active Substance: IOHEXOL
     Dates: start: 20241118, end: 20241118

REACTIONS (8)
  - Erythema [None]
  - Livedo reticularis [None]
  - Respiratory distress [None]
  - Blood pressure increased [None]
  - Heart rate increased [None]
  - Chills [None]
  - Urinary tract infection [None]
  - Hypersensitivity [None]

NARRATIVE: CASE EVENT DATE: 20241118
